FAERS Safety Report 19759090 (Version 2)
Quarter: 2021Q3

REPORT INFORMATION
  Report Type: Report from Study
  Country: FI (occurrence: FI)
  Receive Date: 20210827
  Receipt Date: 20210913
  Transmission Date: 20211014
  Serious: Yes (Hospitalization)
  Sender: FDA-Public Use
  Company Number: FI-EISAI MEDICAL RESEARCH-EC-2021-094625

PATIENT
  Age: 12 Year
  Sex: Female
  Weight: 38 kg

DRUGS (8)
  1. IFOSFAMIDE. [Suspect]
     Active Substance: IFOSFAMIDE
     Indication: OSTEOSARCOMA RECURRENT
     Route: 042
     Dates: start: 20210615, end: 20210819
  2. PARACETAMOL [Concomitant]
     Active Substance: ACETAMINOPHEN
  3. LENVATINIB [Suspect]
     Active Substance: LENVATINIB
     Dosage: DOSE REDUCED 20%
     Route: 048
     Dates: start: 20210831
  4. ETOPOSIDE. [Suspect]
     Active Substance: ETOPOSIDE
     Dosage: DOSE REDUCED 20%
     Route: 042
     Dates: start: 20210907
  5. IFOSFAMIDE. [Suspect]
     Active Substance: IFOSFAMIDE
     Dosage: DOSE REDUCED 20%
     Route: 042
     Dates: start: 20210907
  6. ETORICOXIBE [Suspect]
     Active Substance: ETORICOXIB
     Indication: PRODUCT USED FOR UNKNOWN INDICATION
     Route: 048
     Dates: start: 20210813, end: 20210820
  7. LENVATINIB [Suspect]
     Active Substance: LENVATINIB
     Indication: OSTEOSARCOMA RECURRENT
     Route: 048
     Dates: start: 20210623, end: 202108
  8. ETOPOSIDE. [Suspect]
     Active Substance: ETOPOSIDE
     Indication: OSTEOSARCOMA RECURRENT
     Route: 042
     Dates: start: 20210615, end: 20210819

REACTIONS (3)
  - Proteinuria [Recovered/Resolved]
  - Transaminases increased [Recovered/Resolved]
  - Febrile neutropenia [Recovered/Resolved]

NARRATIVE: CASE EVENT DATE: 20210624
